FAERS Safety Report 6422767-3 (Version None)
Quarter: 2009Q4

REPORT INFORMATION
  Report Type: 
  Country: None (occurrence: None)
  Receive Date: 20091102
  Receipt Date: 20091023
  Transmission Date: 20100525
  Serious: Yes (Hospitalization)
  Sender: FDA-Public Use
  Company Number: FR-JNJFOC-20090506525

PATIENT
  Sex: Female
  Weight: 61 kg

DRUGS (4)
  1. KETODERM [Suspect]
     Indication: DERMATITIS
     Route: 061
     Dates: start: 20080904, end: 20080910
  2. ECONAZOLE NITRATE [Suspect]
     Indication: DRUG USE FOR UNKNOWN INDICATION
     Route: 061
     Dates: start: 20080904, end: 20080910
  3. PYOSTACINE [Concomitant]
     Route: 048
  4. BETADINE [Concomitant]
     Route: 065

REACTIONS (5)
  - ANAEMIA [None]
  - DYSHIDROSIS [None]
  - ECZEMA [None]
  - EOSINOPHILIA [None]
  - TYPE IV HYPERSENSITIVITY REACTION [None]
